FAERS Safety Report 7383473-4 (Version None)
Quarter: 2011Q1

REPORT INFORMATION
  Report Type: 
  Country: None (occurrence: None)
  Receive Date: 20110330
  Receipt Date: 20110321
  Transmission Date: 20110831
  Serious: Yes (Other)
  Sender: FDA-Public Use
  Company Number: US-JNJFOC-20110310234

PATIENT
  Sex: Female

DRUGS (2)
  1. IMODIUM MULTI-SYMPTOM RELIEF [Suspect]
     Indication: GASTROINTESTINAL PAIN
     Route: 048
  2. IMODIUM MULTI-SYMPTOM RELIEF [Suspect]
     Route: 048

REACTIONS (2)
  - BLADDER DILATATION [None]
  - URINARY HESITATION [None]
